FAERS Safety Report 16837989 (Version 5)
Quarter: 2023Q4

REPORT INFORMATION
  Report Type: Spontaneous
  Country: US (occurrence: US)
  Receive Date: 20190923
  Receipt Date: 20231225
  Transmission Date: 20240109
  Serious: Yes (Hospitalization, Other)
  Sender: FDA-Public Use
  Company Number: US-GILEAD-2019-0429311

PATIENT
  Age: 37 Year
  Sex: Male
  Weight: 104.76 kg

DRUGS (45)
  1. VIREAD [Suspect]
     Active Substance: TENOFOVIR DISOPROXIL FUMARATE
     Indication: HIV infection
     Dosage: UNK
     Route: 048
     Dates: start: 200111, end: 20060830
  2. SODIUM BICARBONATE [Concomitant]
     Active Substance: SODIUM BICARBONATE
  3. CALCIUM [Concomitant]
     Active Substance: CALCIUM
  4. IRON [Concomitant]
     Active Substance: IRON
  5. RENAGEL [Concomitant]
     Active Substance: SEVELAMER HYDROCHLORIDE
  6. CALCIUM ACETATE [Concomitant]
     Active Substance: CALCIUM ACETATE
  7. COMBIVIR [Concomitant]
     Active Substance: LAMIVUDINE\ZIDOVUDINE
  8. EPIVIR [Concomitant]
     Active Substance: LAMIVUDINE
  9. INVIRASE [Concomitant]
     Active Substance: SAQUINAVIR MESYLATE
  10. INTELENCE [Concomitant]
     Active Substance: ETRAVIRINE
  11. ISENTRESS [Concomitant]
     Active Substance: RALTEGRAVIR POTASSIUM
  12. KALETRA [Concomitant]
     Active Substance: LOPINAVIR\RITONAVIR
  13. NORVIR [Concomitant]
     Active Substance: RITONAVIR
  14. PREZISTA [Concomitant]
     Active Substance: DARUNAVIR ETHANOLATE
  15. RETROVIR [Concomitant]
     Active Substance: ZIDOVUDINE
  16. SUSTIVA [Concomitant]
     Active Substance: EFAVIRENZ
  17. TIVICAY [Concomitant]
     Active Substance: DOLUTEGRAVIR SODIUM
  18. VIRACEPT [Concomitant]
     Active Substance: NELFINAVIR MESYLATE
  19. ZIAGEN [Concomitant]
     Active Substance: ABACAVIR SULFATE
  20. TRICOR [Concomitant]
     Active Substance: FENOFIBRATE
  21. AVANDIA [Concomitant]
     Active Substance: ROSIGLITAZONE MALEATE
  22. ACTOS [Concomitant]
     Active Substance: PIOGLITAZONE HYDROCHLORIDE
  23. GLUCOPHAGE [Concomitant]
     Active Substance: METFORMIN HYDROCHLORIDE
  24. MOMETASONE FUROATE [Concomitant]
     Active Substance: MOMETASONE FUROATE
  25. ASPIRIN [Concomitant]
     Active Substance: ASPIRIN
  26. NIASPAN [Concomitant]
     Active Substance: NIACIN
  27. METOPROLOL [Concomitant]
     Active Substance: METOPROLOL
  28. NEBUPENT [Concomitant]
     Active Substance: PENTAMIDINE ISETHIONATE
  29. PRAVACHOL [Concomitant]
     Active Substance: PRAVASTATIN SODIUM
  30. BIAXIN [Concomitant]
     Active Substance: CLARITHROMYCIN
  31. ZETIA [Concomitant]
     Active Substance: EZETIMIBE
  32. INSULIN NOS [Concomitant]
     Active Substance: INSULIN NOS
  33. SULAR [Concomitant]
     Active Substance: NISOLDIPINE
  34. TEMAZEPAM [Concomitant]
     Active Substance: TEMAZEPAM
  35. ALAVERT ALLERGY [Concomitant]
     Active Substance: LORATADINE
  36. ARANESP [Concomitant]
     Active Substance: DARBEPOETIN ALFA
  37. LIPITOR [Concomitant]
     Active Substance: ATORVASTATIN CALCIUM
  38. CRESTOR [Concomitant]
     Active Substance: ROSUVASTATIN CALCIUM
  39. OXYMETAZOLINE HYDROCHLORIDE [Concomitant]
     Active Substance: OXYMETAZOLINE HYDROCHLORIDE
  40. ALLOPURINOL [Concomitant]
     Active Substance: ALLOPURINOL
  41. PANTOPRAZOLE [Concomitant]
     Active Substance: PANTOPRAZOLE
  42. ZITHROMAX [Concomitant]
     Active Substance: AZITHROMYCIN DIHYDRATE
  43. BACTRIM [Concomitant]
     Active Substance: SULFAMETHOXAZOLE\TRIMETHOPRIM
  44. RITONAVIR [Concomitant]
     Active Substance: RITONAVIR
  45. LORATADINE [Concomitant]
     Active Substance: LORATADINE

REACTIONS (21)
  - Acute kidney injury [Not Recovered/Not Resolved]
  - End stage renal disease [Not Recovered/Not Resolved]
  - Renal disorder [Unknown]
  - Chronic kidney disease [Not Recovered/Not Resolved]
  - Renal failure [Not Recovered/Not Resolved]
  - Renal failure [Not Recovered/Not Resolved]
  - Fatigue [Unknown]
  - Pain [Not Recovered/Not Resolved]
  - Emotional distress [Not Recovered/Not Resolved]
  - Loss of personal independence in daily activities [Not Recovered/Not Resolved]
  - Quality of life decreased [Not Recovered/Not Resolved]
  - Decreased activity [Not Recovered/Not Resolved]
  - Economic problem [Not Recovered/Not Resolved]
  - Anxiety [Not Recovered/Not Resolved]
  - Anhedonia [Not Recovered/Not Resolved]
  - Bone demineralisation [Not Recovered/Not Resolved]
  - Depression [Not Recovered/Not Resolved]
  - Renal neoplasm [Unknown]
  - Upper limb fracture [Recovered/Resolved]
  - Hyperparathyroidism secondary [Not Recovered/Not Resolved]
  - Blood creatinine increased [Not Recovered/Not Resolved]

NARRATIVE: CASE EVENT DATE: 20040701
